FAERS Safety Report 5112711-3 (Version None)
Quarter: 2006Q3

REPORT INFORMATION
  Report Type: 
  Country: None (occurrence: None)
  Receive Date: 20060922
  Receipt Date: 20060918
  Transmission Date: 20061208
  Serious: Yes (Hospitalization)
  Sender: FDA-Public Use
  Company Number: DE-GLAXOSMITHKLINE-B0437195B

PATIENT
  Sex: Female
  Weight: 101 kg

DRUGS (4)
  1. TOPOTECAN HYDROCHLORIDE [Suspect]
     Indication: OVARIAN CANCER
     Dosage: 2.48MG PER DAY
     Route: 042
     Dates: start: 20060814, end: 20060818
  2. BELOC ZOK [Concomitant]
     Dosage: 95MG PER DAY
     Route: 048
  3. DELIX [Concomitant]
     Dosage: 30MG PER DAY
  4. TORSEMIDE [Concomitant]
     Dosage: 3.5MG PER DAY
     Route: 048

REACTIONS (6)
  - ANAEMIA [None]
  - HAEMOGLOBIN DECREASED [None]
  - LEUKOPENIA [None]
  - PLATELET COUNT DECREASED [None]
  - THROMBOCYTOPENIA [None]
  - WHITE BLOOD CELL COUNT DECREASED [None]
